FAERS Safety Report 5928994-3 (Version None)
Quarter: 2008Q4

REPORT INFORMATION
  Report Type: 
  Country: None (occurrence: None)
  Receive Date: 20081024
  Receipt Date: 20081015
  Transmission Date: 20090506
  Serious: Yes (Death, Hospitalization)
  Sender: FDA-Public Use
  Company Number: PH-BAXTER-2008BH011132

PATIENT
  Age: 74 Year
  Sex: Female
  Weight: 40 kg

DRUGS (2)
  1. DIANEAL [Suspect]
     Indication: RENAL FAILURE CHRONIC
     Route: 033
     Dates: start: 20080821, end: 20081015
  2. DIANEAL [Suspect]
     Route: 033
     Dates: start: 20080821, end: 20081015

REACTIONS (1)
  - CARDIAC ARREST [None]
